FAERS Safety Report 11485346 (Version 1)
Quarter: 2015Q3

REPORT INFORMATION
  Report Type: Spontaneous
  Country: RU (occurrence: RU)
  Receive Date: 20150909
  Receipt Date: 20150909
  Transmission Date: 20151125
  Serious: Yes (Other)
  Sender: FDA-Public Use
  Company Number: RU-GLAXOSMITHKLINE-RU2015GSK128150

PATIENT
  Age: 60 Year
  Sex: Male

DRUGS (2)
  1. AVODART [Suspect]
     Active Substance: DUTASTERIDE
     Indication: PRODUCT USED FOR UNKNOWN INDICATION
     Dosage: UNK
  2. FINASTERIDE. [Suspect]
     Active Substance: FINASTERIDE
     Indication: PRODUCT USED FOR UNKNOWN INDICATION
     Dosage: UNK

REACTIONS (2)
  - Erectile dysfunction [Unknown]
  - Prostate cancer [Unknown]
